FAERS Safety Report 7582930-5 (Version None)
Quarter: 2011Q2

REPORT INFORMATION
  Report Type: 
  Country: None (occurrence: None)
  Receive Date: 20110630
  Receipt Date: 20110623
  Transmission Date: 20111010
  Serious: Yes (Other)
  Sender: FDA-Public Use
  Company Number: DK-PFIZER INC-2011125628

PATIENT
  Age: 50 Year
  Sex: Female

DRUGS (5)
  1. EPIRUBICIN HYDROCHLORIDE [Suspect]
     Indication: CHEMOTHERAPY
     Route: 042
     Dates: start: 20070801
  2. METOPROLOL SUCCINATE [Concomitant]
     Indication: HEART VALVE INCOMPETENCE
     Dosage: 50 MG, AS NEEDED
  3. CYCLOPHOSPHAMIDE [Suspect]
     Indication: CHEMOTHERAPY
     Dates: start: 20070801
  4. TAXOTERE [Suspect]
     Indication: CHEMOTHERAPY
  5. HERCEPTIN [Suspect]
     Indication: CHEMOTHERAPY
     Route: 042
     Dates: start: 20071217

REACTIONS (6)
  - SKIN EXFOLIATION [None]
  - PAIN IN EXTREMITY [None]
  - DISCOMFORT [None]
  - ONYCHOMADESIS [None]
  - VISUAL IMPAIRMENT [None]
  - SKIN DISORDER [None]
